FAERS Safety Report 10398917 (Version 2)
Quarter: 2014Q3

REPORT INFORMATION
  Report Type: Spontaneous
  Country: US (occurrence: None)
  Receive Date: 20130815
  Receipt Date: 20140815
  Transmission Date: 20150326
  Serious: Yes (Hospitalization, Other)
  Sender: FDA-Public Use
  Company Number: ADR-2012-00613

PATIENT
  Sex: Female

DRUGS (3)
  1. BACLOFEN INTRATHECAL [Concomitant]
     Active Substance: BACLOFEN
  2. LIORESAL [Suspect]
     Active Substance: BACLOFEN
  3. LIORESAL [Suspect]
     Active Substance: BACLOFEN
     Indication: PAIN

REACTIONS (8)
  - Muscle spasticity [None]
  - Mental status changes [None]
  - Pyrexia [None]
  - No therapeutic response [None]
  - Hypertension [None]
  - Drug withdrawal syndrome [None]
  - Overdose [None]
  - Underdose [None]
